FAERS Safety Report 13765279 (Version 1)
Quarter: 2017Q3

REPORT INFORMATION
  Report Type: Spontaneous
  Country: CN (occurrence: CN)
  Receive Date: 20170718
  Receipt Date: 20170718
  Transmission Date: 20171127
  Serious: Yes (Death, Hospitalization)
  Sender: FDA-Public Use
  Company Number: CN-MYLANLABS-2017M1042584

PATIENT

DRUGS (1)
  1. PREDNISOLONE. [Suspect]
     Active Substance: PREDNISOLONE
     Indication: GOUTY ARTHRITIS
     Dosage: 15MG DAILY FROM 2 YEARS
     Route: 065

REACTIONS (1)
  - Scedosporium infection [Fatal]
